FAERS Safety Report 7515887-3 (Version None)
Quarter: 2011Q2

REPORT INFORMATION
  Report Type: 
  Country: None (occurrence: None)
  Receive Date: 20110601
  Receipt Date: 20110526
  Transmission Date: 20111010
  Serious: Yes (Other)
  Sender: FDA-Public Use
  Company Number: US-PFIZER INC-2011115340

PATIENT
  Sex: Female

DRUGS (2)
  1. VIAGRA [Suspect]
     Indication: ERECTILE DYSFUNCTION
     Dosage: UNK
     Route: 048
     Dates: start: 20110101
  2. HEROIN [Concomitant]
     Dosage: UNK

REACTIONS (3)
  - ERECTION INCREASED [None]
  - OVERDOSE [None]
  - IMPAIRED WORK ABILITY [None]
